FAERS Safety Report 16083993 (Version 5)
Quarter: 2020Q2

REPORT INFORMATION
  Report Type: Spontaneous
  Country: US (occurrence: US)
  Receive Date: 20190318
  Receipt Date: 20200521
  Transmission Date: 20200713
  Serious: Yes (Hospitalization)
  Sender: FDA-Public Use
  Company Number: US-PFIZER INC-2019109958

PATIENT
  Age: 54 Year
  Sex: Female

DRUGS (2)
  1. IBRANCE [Suspect]
     Active Substance: PALBOCICLIB
     Dosage: 100 MG, CYCLIC (DAILY FOR 21DAYS,THEN 7 DAYS OFF)
     Route: 048
  2. IBRANCE [Suspect]
     Active Substance: PALBOCICLIB
     Dosage: 75 MG, CYCLIC (1 TAB DAILY FOR 21 DAYS OFF FOR 7DAYS)
     Route: 048

REACTIONS (8)
  - Pyrexia [Unknown]
  - Bronchitis [Unknown]
  - Sinusitis [Unknown]
  - Neoplasm recurrence [Unknown]
  - White blood cell count decreased [Unknown]
  - Onychoclasis [Unknown]
  - Decreased immune responsiveness [Unknown]
  - Malaise [Unknown]
